FAERS Safety Report 5643392-8 (Version None)
Quarter: 2008Q1

REPORT INFORMATION
  Report Type: 
  Country: None (occurrence: None)
  Receive Date: 20080228
  Receipt Date: 20080212
  Transmission Date: 20080703
  Serious: Yes (Death, Other)
  Sender: FDA-Public Use
  Company Number: CA-BAYER-200813548GPV

PATIENT

DRUGS (13)
  1. ALEMTUZUMAB [Suspect]
     Indication: LYMPHOCYTIC LEUKAEMIA
     Route: 065
  2. ALEMTUZUMAB [Suspect]
     Route: 065
  3. ALEMTUZUMAB [Suspect]
     Route: 065
  4. ALEMTUZUMAB [Suspect]
     Route: 065
  5. TRIMETHOPRIM + SULFAMETHOXAZOLE [Concomitant]
     Indication: ANTIFUNGAL PROPHYLAXIS
  6. ACYCLOVIR [Concomitant]
     Indication: ANTIVIRAL PROPHYLAXIS
  7. FAMCYCLOVIR [Concomitant]
  8. VALACYCLOVIR [Concomitant]
  9. FLUCONAZOLE [Concomitant]
     Indication: ANTIFUNGAL PROPHYLAXIS
  10. ACETAMINOPHEN [Concomitant]
     Indication: PROPHYLAXIS
  11. DIMENHYDRINATE [Concomitant]
  12. HYDROCORTISONE [Concomitant]
  13. MEPERIDINE [Concomitant]

REACTIONS (16)
  - BACTERIAL INFECTION [None]
  - CYTOKINE RELEASE SYNDROME [None]
  - CYTOMEGALOVIRUS INFECTION [None]
  - DYSPNOEA [None]
  - FEBRILE NEUTROPENIA [None]
  - HERPES SIMPLEX [None]
  - HYPOTENSION [None]
  - INFECTION [None]
  - INJECTION SITE REACTION [None]
  - MYCOBACTERIUM AVIUM COMPLEX INFECTION [None]
  - NEUTROPENIA [None]
  - PNEUMONIA [None]
  - RASH [None]
  - RESPIRATORY TRACT INFECTION [None]
  - SEPSIS [None]
  - THROMBOCYTOPENIA [None]
